FAERS Safety Report 11486387 (Version 1)
Quarter: 2015Q3

REPORT INFORMATION
  Report Type: Spontaneous
  Country: US (occurrence: US)
  Receive Date: 20150910
  Receipt Date: 20150910
  Transmission Date: 20151125
  Serious: Yes (Hospitalization)
  Sender: FDA-Public Use
  Company Number: US-WEST-WARD PHARMACEUTICALS CORP.-US-H14001-15-01654

PATIENT
  Age: 3 Year
  Sex: Female

DRUGS (7)
  1. DOXORUBICIN [Concomitant]
     Active Substance: DOXORUBICIN
     Indication: BONE GIANT CELL TUMOUR BENIGN
     Route: 065
  2. INTERFERON [Concomitant]
     Active Substance: INTERFERON
     Indication: BONE GIANT CELL TUMOUR BENIGN
     Route: 065
  3. ZOLEDRONIC ACID [Suspect]
     Active Substance: ZOLEDRONIC ACID
     Indication: BONE GIANT CELL TUMOUR BENIGN
     Route: 065
  4. VINCRISTINE [Concomitant]
     Active Substance: VINCRISTINE
     Indication: BONE GIANT CELL TUMOUR BENIGN
     Route: 065
  5. CYCLOPHOSPHAMIDE. [Concomitant]
     Active Substance: CYCLOPHOSPHAMIDE
     Indication: BONE GIANT CELL TUMOUR BENIGN
     Route: 065
  6. PAMIDRONATE [Concomitant]
     Active Substance: PAMIDRONATE DISODIUM
     Indication: BONE GIANT CELL TUMOUR BENIGN
     Route: 065
  7. BEVACIZUMAB [Concomitant]
     Active Substance: BEVACIZUMAB
     Indication: BONE GIANT CELL TUMOUR BENIGN
     Route: 065

REACTIONS (3)
  - Pneumonia influenzal [Unknown]
  - Hypocalcaemia [Unknown]
  - Hypophosphataemia [Unknown]
